FAERS Safety Report 6524255-2 (Version None)
Quarter: 2009Q4

REPORT INFORMATION
  Report Type: 
  Country: None (occurrence: None)
  Receive Date: 20091230
  Receipt Date: 20091230
  Transmission Date: 20100525
  Serious: Yes (Life-Threatening, Hospitalization)
  Sender: FDA-Public Use
  Company Number: None

PATIENT
  Sex: Male
  Weight: 16.3295 kg

DRUGS (2)
  1. CEFDINIR [Suspect]
     Indication: BRONCHITIS
     Dosage: 2ML TWICE A DAY PO
     Route: 048
     Dates: start: 20091224, end: 20091226
  2. CEFDINIR [Suspect]
     Indication: EAR INFECTION
     Dosage: 2ML TWICE A DAY PO
     Route: 048
     Dates: start: 20091224, end: 20091226

REACTIONS (1)
  - IDIOPATHIC THROMBOCYTOPENIC PURPURA [None]
